FAERS Safety Report 5478202-5 (Version None)
Quarter: 2007Q4

REPORT INFORMATION
  Report Type: 
  Country: None (occurrence: None)
  Receive Date: 20071005
  Receipt Date: 20070412
  Transmission Date: 20080405
  Serious: Yes (Life-Threatening, Hospitalization)
  Sender: FDA-Public Use
  Company Number: US-BRISTOL-MYERS SQUIBB COMPANY-13752894

PATIENT
  Age: 60 Year
  Sex: Female

DRUGS (10)
  1. PRINZIDE [Suspect]
     Indication: HYPERTENSION
     Route: 048
  2. IRBESARTAN [Suspect]
     Indication: HYPERTENSION
     Route: 048
  3. AVAPRO [Concomitant]
  4. DARVOCET [Concomitant]
  5. GLUCOPHAGE [Concomitant]
  6. RELAFEN [Concomitant]
  7. ASPIRIN [Concomitant]
  8. METOPROLOL TARTRATE [Concomitant]
  9. MINOXIDIL [Concomitant]
  10. WARFARIN SODIUM [Concomitant]

REACTIONS (4)
  - ANGIOEDEMA [None]
  - PARAESTHESIA [None]
  - SWOLLEN TONGUE [None]
  - THROAT TIGHTNESS [None]
